FAERS Safety Report 23582233 (Version 1)
Quarter: 2024Q1

REPORT INFORMATION
  Report Type: Spontaneous
  Country: US (occurrence: US)
  Receive Date: 20240229
  Receipt Date: 20240229
  Transmission Date: 20240409
  Serious: No
  Sender: FDA-Public Use
  Company Number: US-SA-SAC20240226000259

PATIENT
  Sex: Female

DRUGS (25)
  1. DUPIXENT [Suspect]
     Active Substance: DUPILUMAB
     Indication: Dermatitis atopic
     Dosage: 300 MG QOW
     Route: 058
  2. OLANZAPINE [Concomitant]
     Active Substance: OLANZAPINE
  3. WELLBUTRIN SR [Concomitant]
     Active Substance: BUPROPION HYDROCHLORIDE
  4. GEMTESA [Concomitant]
     Active Substance: VIBEGRON
  5. ARNUITY ELLIPTA [Concomitant]
     Active Substance: FLUTICASONE FUROATE
  6. ATORVASTATIN [Concomitant]
     Active Substance: ATORVASTATIN
  7. CARAFATE [Concomitant]
     Active Substance: SUCRALFATE
  8. CLONIDINE HYDROCHLORIDE [Concomitant]
     Active Substance: CLONIDINE HYDROCHLORIDE
  9. IBUPROFEN [Concomitant]
     Active Substance: IBUPROFEN
  10. KEVEYIS [Concomitant]
     Active Substance: DICHLORPHENAMIDE
  11. LACTULOSE [Concomitant]
     Active Substance: LACTULOSE
  12. METFORMIN HYDROCHLORIDE [Concomitant]
     Active Substance: METFORMIN HYDROCHLORIDE
  13. METHADONE HYDROCHLORIDE [Concomitant]
     Active Substance: METHADONE HYDROCHLORIDE
  14. MOUNJARO [Concomitant]
     Active Substance: TIRZEPATIDE
  15. MOVANTIK [Concomitant]
     Active Substance: NALOXEGOL OXALATE
  16. MONTELUKAST [Concomitant]
     Active Substance: MONTELUKAST SODIUM
  17. PROTOFIX [Concomitant]
  18. SPIRIVA [Concomitant]
     Active Substance: TIOTROPIUM BROMIDE MONOHYDRATE
  19. VENTOLIN HFA [Concomitant]
     Active Substance: ALBUTEROL SULFATE
  20. AMITRIPTYLINE [Concomitant]
     Active Substance: AMITRIPTYLINE
  21. METOPROLOL TARTRATE [Concomitant]
     Active Substance: METOPROLOL TARTRATE
  22. METOPROLOL SUCCINATE [Concomitant]
     Active Substance: METOPROLOL SUCCINATE
  23. METOPROLOL SUCCINATE [Concomitant]
     Active Substance: METOPROLOL SUCCINATE
  24. IMURAN [Concomitant]
     Active Substance: AZATHIOPRINE
  25. ALUMINUM HYDROXIDE\MAGNESIUM TRISILICATE\SODIUM ALGINATE [Concomitant]
     Active Substance: ALUMINUM HYDROXIDE\MAGNESIUM TRISILICATE\SODIUM ALGINATE

REACTIONS (6)
  - Urinary tract infection [Not Recovered/Not Resolved]
  - Depression [Not Recovered/Not Resolved]
  - Anxiety [Not Recovered/Not Resolved]
  - Suffocation feeling [Not Recovered/Not Resolved]
  - Road traffic accident [Unknown]
  - Insomnia [Not Recovered/Not Resolved]
